FAERS Safety Report 16090987 (Version 2)
Quarter: 2025Q3

REPORT INFORMATION
  Report Type: Spontaneous
  Country: EU (occurrence: EU)
  Receive Date: 20190319
  Receipt Date: 20250814
  Transmission Date: 20251021
  Serious: Yes (Other)
  Sender: UCB
  Company Number: EU-UCBSA-2019011562

PATIENT
  Age: 1 Year
  Sex: Male

DRUGS (7)
  1. LEVETIRACETAM [Suspect]
     Active Substance: LEVETIRACETAM
     Indication: Epilepsy
  2. LACOSAMIDE [Suspect]
     Active Substance: LACOSAMIDE
     Indication: Epilepsy
  3. VALPROIC ACID [Suspect]
     Active Substance: VALPROIC ACID
     Indication: Epilepsy
  4. CLOBAZAM [Suspect]
     Active Substance: CLOBAZAM
     Indication: Epilepsy
  5. ZONISAMIDE [Suspect]
     Active Substance: ZONISAMIDE
     Indication: Epilepsy
  6. CARBAMAZEPINE [Suspect]
     Active Substance: CARBAMAZEPINE
     Indication: Epilepsy
  7. PERAMPANEL [Suspect]
     Active Substance: PERAMPANEL
     Indication: Epilepsy

REACTIONS (3)
  - Status epilepticus [Recovered/Resolved]
  - Petit mal epilepsy [Recovered/Resolved]
  - Multiple-drug resistance [Unknown]
